FAERS Safety Report 24180927 (Version 3)
Quarter: 2024Q3

REPORT INFORMATION
  Report Type: Report from Study
  Country: US (occurrence: US)
  Receive Date: 20240806
  Receipt Date: 20240823
  Transmission Date: 20241017
  Serious: No
  Sender: ALEXION PHARMACEUTICALS
  Company Number: US-AstraZeneca-CH-00674664A

PATIENT
  Sex: Male

DRUGS (1)
  1. SOLIRIS [Suspect]
     Active Substance: ECULIZUMAB
     Indication: Product used for unknown indication
     Dosage: UNK
     Route: 065

REACTIONS (11)
  - Drug effect less than expected [Unknown]
  - Paraesthesia [Unknown]
  - Immune system disorder [Unknown]
  - Muscular weakness [Unknown]
  - Dyspnoea [Unknown]
  - Insomnia [Unknown]
  - Sinusitis [Unknown]
  - Diarrhoea [Unknown]
  - Temperature intolerance [Unknown]
  - Mobility decreased [Unknown]
  - Somnolence [Unknown]
